FAERS Safety Report 8362844-3 (Version None)
Quarter: 2012Q2

REPORT INFORMATION
  Report Type: 
  Country: None (occurrence: None)
  Receive Date: 20120516
  Receipt Date: 20120514
  Transmission Date: 20120825
  Serious: Yes (Death, Other)
  Sender: FDA-Public Use
  Company Number: PHEH2009US02563

PATIENT
  Sex: Female

DRUGS (9)
  1. AREDIA [Suspect]
     Dates: start: 20000301, end: 20060501
  2. MIRTAZAPINE [Concomitant]
     Indication: DEPRESSION
     Dosage: 15 MG, ONCE/SINGLE BEDTIME
  3. WARFARIN SODIUM [Concomitant]
  4. AVAPRO [Concomitant]
     Indication: HYPERTENSION
     Dosage: 150 MG, ONCE/SINGLE
  5. COUMADIN [Concomitant]
  6. FUROSEMIDE [Concomitant]
     Dosage: 80 MG, ONCE/SINGLE
  7. METRONIDAZOLE [Concomitant]
     Indication: OSTEOMYELITIS
  8. PAMIDRONATE DISODIUM [Suspect]
     Dates: start: 20000301, end: 20060501
  9. ADVAIR DISKUS 100/50 [Concomitant]
     Indication: DYSPNOEA

REACTIONS (44)
  - EMOTIONAL DISTRESS [None]
  - RESPIRATORY FAILURE [None]
  - DYSPNOEA [None]
  - MONOCLONAL GAMMOPATHY [None]
  - CARDIAC FAILURE CONGESTIVE [None]
  - DEATH [None]
  - OEDEMA PERIPHERAL [None]
  - AORTIC VALVE INCOMPETENCE [None]
  - KYPHOSIS [None]
  - NAUSEA [None]
  - RHEUMATIC HEART DISEASE [None]
  - ANXIETY [None]
  - PHYSICAL DISABILITY [None]
  - RIGHT ATRIAL DILATATION [None]
  - ASTHMA [None]
  - ABDOMINAL PAIN UPPER [None]
  - SICK SINUS SYNDROME [None]
  - INFECTION [None]
  - NEUROPATHY PERIPHERAL [None]
  - DEPRESSION [None]
  - OSTEOPENIA [None]
  - DEMENTIA ALZHEIMER'S TYPE [None]
  - RHEUMATIC FEVER [None]
  - OSTEOMYELITIS [None]
  - ARTERIOSCLEROSIS [None]
  - ARTHRITIS [None]
  - GASTROINTESTINAL HAEMORRHAGE [None]
  - PAIN [None]
  - SPINAL COMPRESSION FRACTURE [None]
  - CHRONIC OBSTRUCTIVE PULMONARY DISEASE [None]
  - HYPERTENSION [None]
  - HAEMATOMA [None]
  - DECREASED APPETITE [None]
  - DYSPHAGIA [None]
  - ORTHOPNOEA [None]
  - TRICUSPID VALVE INCOMPETENCE [None]
  - DIARRHOEA [None]
  - OSTEONECROSIS OF JAW [None]
  - DEFORMITY [None]
  - EXPOSED BONE IN JAW [None]
  - HYPOAESTHESIA [None]
  - MUSCULOSKELETAL CHEST PAIN [None]
  - CATARACT [None]
  - COUGH [None]
